FAERS Safety Report 9939309 (Version 1)
Quarter: 2014Q1

REPORT INFORMATION
  Report Type: Report from Study
  Country: US (occurrence: US)
  Receive Date: 20140303
  Receipt Date: 20140303
  Transmission Date: 20141002
  Serious: No
  Sender: FDA-Public Use
  Company Number: US-ABBVIE-13P-163-1038700-00

PATIENT
  Age: 50 Year
  Sex: Male

DRUGS (9)
  1. HUMIRA [Suspect]
     Indication: SPONDYLOARTHROPATHY
     Dates: start: 20130114
  2. COZAAR [Concomitant]
     Indication: HYPERTENSION
  3. COREG [Concomitant]
     Indication: PRODUCT USED FOR UNKNOWN INDICATION
  4. NORVASC [Concomitant]
     Indication: PRODUCT USED FOR UNKNOWN INDICATION
     Dosage: 5MG DAILY
  5. NEXIUM [Concomitant]
     Indication: PRODUCT USED FOR UNKNOWN INDICATION
     Dosage: 40MG DAILY
  6. BUTALBITAL/ASPIRIN/CAFFEINE [Concomitant]
     Indication: PAIN
     Dosage: 325/50/40MG 3-4 TIMES DAILY
  7. VITAMIN B [Concomitant]
     Indication: PRODUCT USED FOR UNKNOWN INDICATION
     Dosage: 1.25MG/50,000 UNITS
  8. AMERGE [Concomitant]
     Indication: HEADACHE
  9. VITAMIN D [Concomitant]
     Indication: VITAMIN D DECREASED
     Dates: start: 20130115

REACTIONS (5)
  - Angina pectoris [Not Recovered/Not Resolved]
  - Influenza like illness [Not Recovered/Not Resolved]
  - Pain [Not Recovered/Not Resolved]
  - Nausea [Not Recovered/Not Resolved]
  - Headache [Not Recovered/Not Resolved]
